FAERS Safety Report 6280285-X (Version None)
Quarter: 2009Q3

REPORT INFORMATION
  Report Type: 
  Country: None (occurrence: None)
  Receive Date: 20090723
  Receipt Date: 20090716
  Transmission Date: 20100115
  Serious: No
  Sender: FDA-Public Use
  Company Number: DE-ASTRAZENECA-2009PK01432

PATIENT
  Age: 18 Year
  Sex: Male
  Weight: 76 kg

DRUGS (23)
  1. SEROQUEL [Suspect]
     Indication: SHARED PSYCHOTIC DISORDER
     Route: 048
     Dates: start: 20080101
  2. SEROQUEL [Suspect]
     Indication: POLYSUBSTANCE DEPENDENCE
     Route: 048
     Dates: start: 20080101
  3. SEROQUEL [Suspect]
     Indication: DEPRESSION
     Route: 048
     Dates: start: 20080101
  4. SEROQUEL [Suspect]
     Route: 048
     Dates: start: 20090120, end: 20090123
  5. SEROQUEL [Suspect]
     Route: 048
     Dates: start: 20090120, end: 20090123
  6. SEROQUEL [Suspect]
     Route: 048
     Dates: start: 20090120, end: 20090123
  7. SEROQUEL [Suspect]
     Route: 048
     Dates: start: 20090123, end: 20090201
  8. SEROQUEL [Suspect]
     Route: 048
     Dates: start: 20090123, end: 20090201
  9. SEROQUEL [Suspect]
     Route: 048
     Dates: start: 20090123, end: 20090201
  10. SEROQUEL [Suspect]
     Route: 048
     Dates: start: 20090202, end: 20090323
  11. SEROQUEL [Suspect]
     Route: 048
     Dates: start: 20090202, end: 20090323
  12. SEROQUEL [Suspect]
     Route: 048
     Dates: start: 20090202, end: 20090323
  13. SEROQUEL [Suspect]
     Route: 048
     Dates: start: 20090425, end: 20090602
  14. SEROQUEL [Suspect]
     Route: 048
     Dates: start: 20090425, end: 20090602
  15. SEROQUEL [Suspect]
     Route: 048
     Dates: start: 20090425, end: 20090602
  16. SEROQUEL [Suspect]
     Route: 048
     Dates: start: 20090603, end: 20090604
  17. SEROQUEL [Suspect]
     Route: 048
     Dates: start: 20090603, end: 20090604
  18. SEROQUEL [Suspect]
     Route: 048
     Dates: start: 20090603, end: 20090604
  19. ZYPREXA [Concomitant]
     Route: 048
     Dates: start: 20090604, end: 20090617
  20. ATOSIL [Concomitant]
     Route: 048
     Dates: start: 20090604, end: 20090617
  21. APONAL [Concomitant]
     Route: 048
     Dates: start: 20090618
  22. ISOSORBIDE DINITRATE [Concomitant]
     Route: 048
     Dates: start: 20090313, end: 20090401
  23. ISOSORBIDE DINITRATE [Concomitant]
     Route: 048
     Dates: start: 20090402, end: 20090425

REACTIONS (1)
  - THROMBOCYTOPENIA [None]
